FAERS Safety Report 12053059 (Version 2)
Quarter: 2017Q1

REPORT INFORMATION
  Report Type: Spontaneous
  Country: US (occurrence: US)
  Receive Date: 20160209
  Receipt Date: 20170105
  Transmission Date: 20170428
  Serious: No
  Sender: FDA-Public Use
  Company Number: US-ENDO PHARMACEUTICALS INC.-2015-003752

PATIENT
  Age: 63 Year
  Sex: Male
  Weight: 86.26 kg

DRUGS (1)
  1. FORTESTA [Suspect]
     Active Substance: TESTOSTERONE
     Indication: BLOOD TESTOSTERONE DECREASED
     Dosage: 4 PUMPS TO EACH THIGH AREA (80MG TOTAL)
     Route: 061

REACTIONS (3)
  - Prescribed overdose [Not Recovered/Not Resolved]
  - Blood testosterone decreased [Unknown]
  - Product quality issue [Unknown]

NARRATIVE: CASE EVENT DATE: 20151007
